FAERS Safety Report 7087134-0 (Version None)
Quarter: 2010Q4

REPORT INFORMATION
  Report Type: 
  Country: None (occurrence: None)
  Receive Date: 20101106
  Receipt Date: 20101025
  Transmission Date: 20110411
  Serious: No
  Sender: FDA-Public Use
  Company Number: US-WYE-H18352710

PATIENT
  Age: 75 Year
  Sex: Male
  Weight: 74.91 kg

DRUGS (3)
  1. ADVIL [Suspect]
     Indication: ARTHRITIS
     Dosage: 1 LIQUI-GELS UP TO 6 TIMES A DAY
     Route: 048
     Dates: start: 20090101
  2. ADVIL [Suspect]
     Indication: BURSITIS
  3. ADVIL [Suspect]
     Indication: PAIN

REACTIONS (1)
  - DRUG EFFECT DECREASED [None]
